FAERS Safety Report 14243805 (Version 1)
Quarter: 2017Q4

REPORT INFORMATION
  Report Type: Spontaneous
  Country: US (occurrence: US)
  Receive Date: 20171201
  Receipt Date: 20171201
  Transmission Date: 20180321
  Serious: Yes (Other)
  Sender: FDA-Public Use
  Company Number: None

PATIENT
  Age: 35 Year
  Sex: Female
  Weight: 58.5 kg

DRUGS (2)
  1. DOXYCYCLINE HYCLATE DR 200MG EC TAB [Suspect]
     Active Substance: DOXYCYCLINE HYCLATE
     Indication: ROSACEA
     Dosage: ?          QUANTITY:30 TABLET(S);?
     Route: 048
  2. DORYX [Concomitant]
     Active Substance: DOXYCYCLINE HYCLATE

REACTIONS (8)
  - Anxiety [None]
  - Formication [None]
  - Palpitations [None]
  - Therapy change [None]
  - Panic attack [None]
  - Dizziness [None]
  - Disorientation [None]
  - Dyspnoea [None]

NARRATIVE: CASE EVENT DATE: 20171201
